FAERS Safety Report 5001350-0 (Version None)
Quarter: 2006Q2

REPORT INFORMATION
  Report Type: 
  Country: None (occurrence: None)
  Receive Date: 20060512
  Receipt Date: 20060112
  Transmission Date: 20061013
  Serious: Yes (Hospitalization)
  Sender: FDA-Public Use
  Company Number: US-MERCK-0601USA01564

PATIENT
  Age: 60 Year
  Sex: Female
  Weight: 80 kg

DRUGS (54)
  1. GLUCOVANCE [Concomitant]
     Indication: DIABETES MELLITUS
     Route: 065
  2. HUMALOG [Concomitant]
     Indication: DIABETES MELLITUS
     Route: 065
  3. METFORMIN [Concomitant]
     Indication: DIABETES MELLITUS
     Route: 065
  4. LEVOXYL [Concomitant]
     Indication: HYPOTHYROIDISM
     Route: 065
     Dates: start: 19990701
  5. FOLTX [Concomitant]
     Indication: VITAMIN SUPPLEMENTATION
     Route: 065
  6. KLOR-CON [Concomitant]
     Indication: VITAMIN SUPPLEMENTATION
     Route: 065
  7. NEXIUM [Concomitant]
     Indication: GASTROOESOPHAGEAL REFLUX DISEASE
     Route: 065
  8. NEXIUM [Concomitant]
     Indication: HIATUS HERNIA
     Route: 065
  9. PRILOSEC [Concomitant]
     Indication: GASTROOESOPHAGEAL REFLUX DISEASE
     Route: 065
  10. PRILOSEC [Concomitant]
     Indication: HIATUS HERNIA
     Route: 065
  11. METHOCARBAMOL [Concomitant]
     Route: 065
  12. VALTREX [Concomitant]
     Indication: INFECTION
     Route: 065
  13. NAPROSYN [Concomitant]
     Indication: PAIN
     Route: 065
     Dates: start: 20000101, end: 20000201
  14. RELAFEN [Concomitant]
     Indication: PAIN
     Route: 065
     Dates: start: 19991101, end: 19991101
  15. ULTRACET [Concomitant]
     Indication: PAIN
     Route: 065
     Dates: start: 20030301, end: 20030401
  16. DIFLUCAN [Concomitant]
     Indication: MALAISE
     Route: 065
  17. LEVAQUIN [Concomitant]
     Indication: INFECTION
     Route: 065
  18. LEVAQUIN [Concomitant]
     Indication: MALAISE
     Route: 065
  19. TEQUIN [Concomitant]
     Indication: INFECTION
     Route: 065
  20. TEQUIN [Concomitant]
     Indication: MALAISE
     Route: 065
  21. TERAZOL 7 [Concomitant]
     Indication: INFECTION
     Route: 065
  22. TERAZOL 7 [Concomitant]
     Indication: MALAISE
     Route: 065
  23. TOBRADEX [Concomitant]
     Indication: INFECTION
     Route: 065
  24. TOBRADEX [Concomitant]
     Indication: MALAISE
     Route: 065
  25. ZITHROMAX [Concomitant]
     Indication: INFECTION
     Route: 065
  26. ZITHROMAX [Concomitant]
     Indication: MALAISE
     Route: 065
  27. HISTINEX HC [Concomitant]
     Route: 065
  28. DIPROLENE [Concomitant]
     Indication: DRY SKIN
     Route: 065
  29. DIPROLENE [Concomitant]
     Indication: SKIN FISSURES
     Route: 065
  30. CILOXAN [Concomitant]
     Indication: EYE INFECTION
     Route: 065
  31. VIOXX [Suspect]
     Indication: OSTEOARTHRITIS
     Route: 048
     Dates: start: 19991116, end: 20040122
  32. ACETAMINOPHEN AND CODEINE [Concomitant]
     Indication: PAIN
     Route: 065
     Dates: start: 20030301, end: 20040601
  33. ACETAMINOPHEN AND CODEINE [Concomitant]
     Indication: OSTEOARTHRITIS
     Route: 065
     Dates: start: 20030301, end: 20040601
  34. DURAGESIC-100 [Concomitant]
     Indication: PAIN
     Route: 065
     Dates: start: 20031201, end: 20050101
  35. DURAGESIC-100 [Concomitant]
     Indication: OSTEOARTHRITIS
     Route: 065
     Dates: start: 20031201, end: 20050101
  36. HYDROCODONE BITARTRATE AND IBUPROFEN [Concomitant]
     Indication: PAIN
     Route: 065
     Dates: start: 20031201, end: 20031201
  37. HYDROCODONE BITARTRATE AND IBUPROFEN [Concomitant]
     Indication: OSTEOARTHRITIS
     Route: 065
     Dates: start: 20031201, end: 20031201
  38. MOBIC [Concomitant]
     Indication: PAIN
     Route: 065
     Dates: start: 20021201
  39. MOBIC [Concomitant]
     Indication: OSTEOARTHRITIS
     Route: 065
     Dates: start: 20021201
  40. ALLEGRA [Concomitant]
     Indication: ANTIALLERGIC THERAPY
     Route: 065
  41. CLARITIN-D [Concomitant]
     Indication: ANTIALLERGIC THERAPY
     Route: 065
  42. SINGULAIR [Concomitant]
     Indication: ANTIALLERGIC THERAPY
     Route: 065
  43. AMBIEN [Concomitant]
     Indication: INSOMNIA
     Route: 065
  44. AMOXIL [Concomitant]
     Indication: INFECTION
     Route: 065
  45. AMOXIL [Concomitant]
     Indication: MALAISE
     Route: 065
  46. AUGMENTIN '125' [Concomitant]
     Indication: INFECTION
     Route: 065
  47. AUGMENTIN '125' [Concomitant]
     Indication: MALAISE
     Route: 065
  48. AVELOX [Concomitant]
     Indication: INFECTION
     Route: 065
  49. AVELOX [Concomitant]
     Indication: MALAISE
     Route: 065
  50. DIFLUCAN [Concomitant]
     Indication: INFECTION
     Route: 065
  51. GENOPTIC [Concomitant]
     Indication: EYE INFECTION
     Route: 065
  52. VIVELLE [Concomitant]
     Indication: HORMONE REPLACEMENT THERAPY
     Route: 065
     Dates: start: 19950101
  53. GLUCOPHAGE [Concomitant]
     Indication: DIABETES MELLITUS
     Route: 065
  54. GLUCOTROL [Concomitant]
     Indication: DIABETES MELLITUS
     Route: 065

REACTIONS (13)
  - ANAEMIA [None]
  - ANXIETY [None]
  - ARRHYTHMIA [None]
  - BLOOD CHOLESTEROL ABNORMAL [None]
  - CARDIAC MURMUR [None]
  - CATARACT [None]
  - CHEST PAIN [None]
  - CORONARY ARTERY DISEASE [None]
  - DEPRESSION [None]
  - HOSPITALISATION [None]
  - MYOCARDIAL INFARCTION [None]
  - OEDEMA PERIPHERAL [None]
  - PNEUMONIA [None]
